FAERS Safety Report 9186370 (Version 3)
Quarter: 2013Q2

REPORT INFORMATION
  Report Type: Report from Study
  Country: GB (occurrence: GB)
  Receive Date: 20130325
  Receipt Date: 20130423
  Transmission Date: 20140414
  Serious: Yes (Hospitalization)
  Sender: FDA-Public Use
  Company Number: GB-ROCHE-1201364

PATIENT
  Age: 61 Year
  Sex: Female

DRUGS (8)
  1. TRASTUZUMAB [Suspect]
     Indication: BREAST CANCER
     Dosage: LOADING DOSE ON DAY 1 OF CYCLE
     Route: 042
     Dates: start: 20121206
  2. TRASTUZUMAB [Suspect]
     Dosage: MAINTENANCE DOSE, DATE OF LAST DOSE PRIOR TO SAE: 28
     Route: 042
  3. DOCETAXEL [Suspect]
     Indication: BREAST CANCER
     Dosage: DATE OF LAST DOSE PRIOR TO SAE: 28/FEB/2013
     Route: 042
     Dates: start: 20121206
  4. CARBOPLATIN [Suspect]
     Indication: BREAST CANCER
     Dosage: DOSE: 6AUC, DATE OF LAST DOSE PRIOR TO SAE: 28/FEB/2013
     Route: 042
     Dates: start: 20121206
  5. DOMPERIDONE [Concomitant]
     Route: 065
     Dates: start: 20121206
  6. LANSOPRAZOLE [Concomitant]
     Route: 065
     Dates: start: 20121224
  7. PARACETAMOL [Concomitant]
     Route: 065
  8. PLACEBO [Suspect]
     Indication: BREAST CANCER
     Dosage: LAST DOSE PRIOR TO SAE: 28 FEB 2013
     Route: 065

REACTIONS (1)
  - Pyrexia [Recovered/Resolved]
